FAERS Safety Report 5966748-2 (Version None)
Quarter: 2008Q4

REPORT INFORMATION
  Report Type: 
  Country: None (occurrence: None)
  Receive Date: 20081125
  Receipt Date: 20080926
  Transmission Date: 20090506
  Serious: No
  Sender: FDA-Public Use
  Company Number: US-AMGEN-KDL309975

PATIENT
  Sex: Female

DRUGS (2)
  1. ENBREL [Suspect]
     Indication: PSORIASIS
     Dates: start: 20060101
  2. INSULIN [Concomitant]

REACTIONS (4)
  - DEPRESSED MOOD [None]
  - INJECTION SITE PAIN [None]
  - PSORIASIS [None]
  - STRESS [None]
